FAERS Safety Report 8616127-4 (Version None)
Quarter: 2012Q3

REPORT INFORMATION
  Report Type: 
  Country: None (occurrence: None)
  Receive Date: 20120823
  Receipt Date: 20120808
  Transmission Date: 20120928
  Serious: Yes (Other)
  Sender: FDA-Public Use
  Company Number: VE-ROCHE-1102364

PATIENT
  Sex: Female

DRUGS (3)
  1. XOLAIR [Suspect]
     Indication: ASTHMA
     Route: 058
     Dates: start: 20120416
  2. FEXOFENADINE [Concomitant]
     Dates: end: 20120601
  3. ALBUTEROL SULATE [Concomitant]

REACTIONS (3)
  - BRONCHOSPASM [None]
  - RHINITIS [None]
  - INCREASED UPPER AIRWAY SECRETION [None]
